FAERS Safety Report 18236049 (Version 8)
Quarter: 2020Q4

REPORT INFORMATION
  Report Type: Spontaneous
  Country: US (occurrence: US)
  Receive Date: 20200906
  Receipt Date: 20201228
  Transmission Date: 20210113
  Serious: Yes (Other)
  Sender: FDA-Public Use
  Company Number: US-GLAXOSMITHKLINE-US2020AMR175058

PATIENT
  Sex: Female

DRUGS (3)
  1. ZEJULA [Suspect]
     Active Substance: NIRAPARIB
     Dosage: 200 MG, QD
     Route: 048
     Dates: start: 20201008
  2. ZEJULA [Suspect]
     Active Substance: NIRAPARIB
     Indication: OVARIAN CANCER
     Dosage: 200 MG, QD
     Route: 048
     Dates: start: 20200820, end: 20200927
  3. ZEJULA [Suspect]
     Active Substance: NIRAPARIB
     Dosage: 200 MG, QD
     Route: 048
     Dates: start: 2020, end: 202012

REACTIONS (19)
  - Seizure [Recovering/Resolving]
  - Fatigue [Unknown]
  - Red blood cell count decreased [Unknown]
  - Speech disorder [Unknown]
  - White blood cell count decreased [Unknown]
  - Flatulence [Unknown]
  - Dizziness [Unknown]
  - Heart rate increased [Unknown]
  - Carbohydrate antigen 125 increased [Unknown]
  - Head injury [Unknown]
  - Pain [Unknown]
  - Decreased appetite [Unknown]
  - Dry mouth [Unknown]
  - Disorientation [Unknown]
  - Abdominal pain upper [Unknown]
  - Sleep disorder [Unknown]
  - Hot flush [Unknown]
  - Vomiting [Unknown]
  - Asthenia [Unknown]
